FAERS Safety Report 12002103 (Version 1)
Quarter: 2016Q1

REPORT INFORMATION
  Report Type: Spontaneous
  Country: US (occurrence: US)
  Receive Date: 20160204
  Receipt Date: 20160204
  Transmission Date: 20160526
  Serious: No
  Sender: FDA-Public Use
  Company Number: US-INVAGEN PHARMACEUTICALS, INC.-1047323

PATIENT
  Age: 76 Year
  Sex: Female
  Weight: 56.82 kg

DRUGS (1)
  1. GABAPENTIN. [Suspect]
     Active Substance: GABAPENTIN
     Indication: RESTLESS LEGS SYNDROME
     Route: 048

REACTIONS (4)
  - Wheezing [Unknown]
  - Reaction to drug excipients [None]
  - Feeling jittery [Unknown]
  - Insomnia [Unknown]
